FAERS Safety Report 5005533-5 (Version None)
Quarter: 2006Q2

REPORT INFORMATION
  Report Type: 
  Country: None (occurrence: None)
  Receive Date: 20060518
  Receipt Date: 20060509
  Transmission Date: 20061013
  Serious: Yes (Hospitalization)
  Sender: FDA-Public Use
  Company Number: CA-ROCHE-447512

PATIENT
  Age: 46 Year
  Sex: Female

DRUGS (4)
  1. XENICAL [Suspect]
     Indication: WEIGHT CONTROL
     Route: 048
     Dates: start: 20050501, end: 20060217
  2. XENICAL [Suspect]
     Route: 048
     Dates: start: 20060501
  3. DEMEROL [Concomitant]
     Indication: ABDOMINAL PAIN
     Dosage: PATIENT STARTED TREATMENT MORE THAN EIGHT YEARS AGO.
     Route: 048
     Dates: start: 19980615
  4. CENTRUM [Concomitant]
     Route: 048

REACTIONS (1)
  - INTESTINAL OBSTRUCTION [None]
